FAERS Safety Report 10495094 (Version 1)
Quarter: 2014Q3

REPORT INFORMATION
  Report Type: Spontaneous
  Country: US (occurrence: None)
  Receive Date: 20140815
  Receipt Date: 20140815
  Transmission Date: 20150326
  Serious: Yes (Other)
  Sender: FDA-Public Use
  Company Number: ADR-2010-9095

PATIENT
  Age: 64 Year
  Sex: Male

DRUGS (5)
  1. DILAUDID [Concomitant]
     Active Substance: HYDROMORPHONE HYDROCHLORIDE
  2. DILAUDID [Suspect]
     Active Substance: HYDROMORPHONE HYDROCHLORIDE
  3. CLONIDINE. [Concomitant]
     Active Substance: CLONIDINE
  4. BACLOFEN INTRATHECAL (BACLOFEN INJECTION) [Suspect]
     Active Substance: BACLOFEN
     Indication: MUSCLE SPASTICITY
     Route: 037
  5. BUPIVACAINE [Concomitant]
     Active Substance: BUPIVACAINE

REACTIONS (3)
  - Pain [None]
  - Hypoaesthesia [None]
  - Therapeutic response decreased [None]

NARRATIVE: CASE EVENT DATE: 20100609
